FAERS Safety Report 20316583 (Version 1)
Quarter: 2022Q1

REPORT INFORMATION
  Report Type: Spontaneous
  Country: CN (occurrence: CN)
  Receive Date: 20220110
  Receipt Date: 20220110
  Transmission Date: 20220423
  Serious: Yes (Hospitalization)
  Sender: FDA-Public Use
  Company Number: CN-JNJFOC-20220108187

PATIENT
  Age: 33 Year
  Sex: Male
  Weight: 67 kg

DRUGS (2)
  1. SPORANOX [Suspect]
     Active Substance: ITRACONAZOLE
     Indication: Cryptococcosis
     Route: 048
     Dates: start: 20210712, end: 20210723
  2. SPORANOX [Suspect]
     Active Substance: ITRACONAZOLE
     Indication: Infection

REACTIONS (1)
  - Myelosuppression [Recovering/Resolving]

NARRATIVE: CASE EVENT DATE: 20210715
